FAERS Safety Report 7482746-4 (Version None)
Quarter: 2011Q2

REPORT INFORMATION
  Report Type: 
  Country: None (occurrence: None)
  Receive Date: 20110516
  Receipt Date: 20110510
  Transmission Date: 20111010
  Serious: Yes (Hospitalization, Other)
  Sender: FDA-Public Use
  Company Number: BR-MEDIMMUNE-MEDI-0013189

PATIENT
  Sex: Male
  Weight: 8 kg

DRUGS (2)
  1. SYNAGIS [Suspect]
     Indication: CARDIAC DISORDER
     Route: 030
     Dates: start: 20100701, end: 20100701
  2. SPIRONOLACTONE [Concomitant]
     Route: 048
     Dates: start: 20101201

REACTIONS (12)
  - ABDOMINAL DISTENSION [None]
  - CHEST X-RAY ABNORMAL [None]
  - NOCTURNAL DYSPNOEA [None]
  - PNEUMONIA [None]
  - FAECES DISCOLOURED [None]
  - RELAPSING FEVER [None]
  - PYREXIA [None]
  - GASTROOESOPHAGEAL REFLUX DISEASE [None]
  - COUGH [None]
  - LARYNGITIS [None]
  - DYSPHONIA [None]
  - DYSPNOEA [None]
